FAERS Safety Report 13887784 (Version 2)
Quarter: 2017Q3

REPORT INFORMATION
  Report Type: Report from Study
  Country: US (occurrence: US)
  Receive Date: 20170821
  Receipt Date: 20170829
  Transmission Date: 20171127
  Serious: Yes (Other)
  Sender: FDA-Public Use
  Company Number: US-SHIRE-US201718272

PATIENT

DRUGS (2)
  1. C1 INHIBITOR (HUMAN) [Suspect]
     Active Substance: HUMAN C1-ESTERASE INHIBITOR
     Indication: TRANSPLANT REJECTION
     Dosage: 2500 IU, UNK
     Route: 065
     Dates: start: 20170805, end: 20170805
  2. C1 INHIBITOR (HUMAN) [Suspect]
     Active Substance: HUMAN C1-ESTERASE INHIBITOR
     Dosage: 5000 IU, UNK
     Route: 065
     Dates: start: 20170803, end: 20170805

REACTIONS (1)
  - Arteriovenous fistula thrombosis [Not Recovered/Not Resolved]

NARRATIVE: CASE EVENT DATE: 20170806
